FAERS Safety Report 5920807-9 (Version None)
Quarter: 2008Q4

REPORT INFORMATION
  Report Type: 
  Country: None (occurrence: None)
  Receive Date: 20081016
  Receipt Date: 20081007
  Transmission Date: 20090506
  Serious: Yes (Other)
  Sender: FDA-Public Use
  Company Number: US-BAYER-200835170NA

PATIENT
  Age: 55 Year
  Sex: Male

DRUGS (2)
  1. NEXAVAR [Suspect]
     Indication: METASTATIC RENAL CELL CARCINOMA
     Dosage: TOTAL DAILY DOSE: 800 MG  UNIT DOSE: 200 MG
     Route: 048
     Dates: start: 20080901
  2. NEXAVAR [Suspect]
     Dosage: TOTAL DAILY DOSE: 1600 MG  UNIT DOSE: 200 MG
     Route: 048
     Dates: start: 20080901

REACTIONS (4)
  - HAEMOPTYSIS [None]
  - NAUSEA [None]
  - RASH [None]
  - VOMITING [None]
